FAERS Safety Report 7011833-X (Version None)
Quarter: 2010Q3

REPORT INFORMATION
  Report Type: 
  Country: None (occurrence: None)
  Receive Date: 20100923
  Receipt Date: 20100305
  Transmission Date: 20110219
  Serious: No
  Sender: FDA-Public Use
  Company Number: US-WYE-H13989810

PATIENT
  Age: 67 Year
  Sex: Female
  Weight: 40.86 kg

DRUGS (2)
  1. ADVIL PM [Suspect]
     Indication: INSOMNIA
     Dosage: 1 LIQUI-GEL AS NEEDED
     Route: 048
  2. LEVOXYL [Concomitant]

REACTIONS (4)
  - COUGH [None]
  - DYSPHAGIA [None]
  - ORAL DISCOMFORT [None]
  - THROAT IRRITATION [None]
